FAERS Safety Report 4545111-5 (Version None)
Quarter: 2005Q1

REPORT INFORMATION
  Report Type: 
  Country: None (occurrence: None)
  Receive Date: 20050104
  Receipt Date: 20050104
  Transmission Date: 20050727
  Serious: Yes (Hospitalization)
  Sender: FDA-Public Use
  Company Number: None

PATIENT
  Sex: Male
  Weight: 72 kg

DRUGS (3)
  1. DOXYCYCLINE [Suspect]
     Indication: URINARY TRACT INFECTION
     Dosage: 100 MG PO BID
     Route: 048
  2. ROFECOXIB [Concomitant]
  3. TRAZODONE HCL [Concomitant]

REACTIONS (2)
  - LOCAL SWELLING [None]
  - RESPIRATORY DISTRESS [None]
